FAERS Safety Report 6328996-1 (Version None)
Quarter: 2009Q3

REPORT INFORMATION
  Report Type: 
  Country: None (occurrence: None)
  Receive Date: 20090824
  Receipt Date: 20090824
  Transmission Date: 20100115
  Serious: Yes (Life-Threatening)
  Sender: FDA-Public Use
  Company Number: None

PATIENT
  Sex: Male
  Weight: 121.7 kg

DRUGS (1)
  1. DEXMEDETOMIDINE [Suspect]
     Indication: SEDATION
     Dates: start: 20090623, end: 20090709

REACTIONS (5)
  - ANXIETY [None]
  - CONVULSION [None]
  - DRUG WITHDRAWAL SYNDROME [None]
  - HYPERHIDROSIS [None]
  - TACHYCARDIA [None]
